FAERS Safety Report 9878343 (Version 1)
Quarter: 2014Q1

REPORT INFORMATION
  Report Type: Spontaneous
  Country: US (occurrence: US)
  Receive Date: 20140206
  Receipt Date: 20140206
  Transmission Date: 20141002
  Serious: Yes (Other)
  Sender: FDA-Public Use
  Company Number: US-TEVA-460599USA

PATIENT
  Sex: Male

DRUGS (1)
  1. RISPERIDONE [Suspect]

REACTIONS (2)
  - Hepatic cancer [Unknown]
  - Gynaecomastia [Recovered/Resolved]
